FAERS Safety Report 16502250 (Version 4)
Quarter: 2019Q3

REPORT INFORMATION
  Report Type: Spontaneous
  Country: US (occurrence: US)
  Receive Date: 20190701
  Receipt Date: 20190910
  Transmission Date: 20191004
  Serious: No
  Sender: FDA-Public Use
  Company Number: US-PFIZER INC-2019271097

PATIENT
  Age: 57 Year
  Sex: Female
  Weight: 75 kg

DRUGS (11)
  1. GABAPENTIN. [Concomitant]
     Active Substance: GABAPENTIN
     Indication: PAIN
     Dosage: 300 MG, 1X/DAY (EVERY DAY AT BEDTIME)
     Route: 048
     Dates: start: 20190531
  2. OXYCONTIN [Concomitant]
     Active Substance: OXYCODONE HYDROCHLORIDE
     Dosage: 1 DF, 2X/DAY (1 EV 12 HR)
  3. ZYPREXA [Concomitant]
     Active Substance: OLANZAPINE
     Indication: NAUSEA
     Dosage: 5 MG, AS NEEDED (EVERY DAY AS NEEDED)
     Route: 048
     Dates: start: 20190606
  4. IBRANCE [Suspect]
     Active Substance: PALBOCICLIB
     Dosage: 125 MG, CYCLIC (1 CAPSULE DAILY FOR 21 DAYS)
     Route: 048
     Dates: start: 20190531, end: 20190823
  5. LETROZOLE. [Concomitant]
     Active Substance: LETROZOLE
     Indication: NEOPLASM MALIGNANT
     Dosage: 2.5 MG, DAILY
     Route: 048
     Dates: start: 20190531
  6. DOCUSATE SODIUM. [Concomitant]
     Active Substance: DOCUSATE SODIUM
     Indication: LAXATIVE SUPPORTIVE CARE
     Dosage: 50 MG, AS NEEDED (TWO (2) TIMES PER DAY)
     Route: 048
     Dates: start: 20190531
  7. CBD OIL [Concomitant]
     Active Substance: CANNABIDIOL\HERBALS
     Dosage: UNK
     Dates: start: 20190430
  8. IBRANCE [Suspect]
     Active Substance: PALBOCICLIB
     Indication: BREAST CANCER METASTATIC
     Dosage: 125 MG, CYCLIC (1 CAPSULE DAILY FOR 21 DAYS)
     Route: 048
     Dates: start: 20190531, end: 20190823
  9. OXYCODONE [Concomitant]
     Active Substance: OXYCODONE
     Indication: PAIN
     Dosage: 10 MG, AS NEEDED (EVERY SIX HOURS AS NEEDED)
     Route: 048
     Dates: start: 20190606
  10. DEXAMETHASONE. [Concomitant]
     Active Substance: DEXAMETHASONE
     Indication: STEROID THERAPY
     Dosage: 4 MG, 2X/DAY
     Route: 048
     Dates: start: 20190531
  11. ZOMETA [Concomitant]
     Active Substance: ZOLEDRONIC ACID
     Indication: TOOTH DISORDER
     Dosage: 100 ML, UNK (EVERY FOUR (4) WEEKS)
     Route: 042
     Dates: start: 20190531

REACTIONS (2)
  - White blood cell count decreased [Not Recovered/Not Resolved]
  - Pain [Recovered/Resolved]

NARRATIVE: CASE EVENT DATE: 201906
